FAERS Safety Report 11212668 (Version 1)
Quarter: 2015Q2

REPORT INFORMATION
  Report Type: Report from Study
  Country: US (occurrence: US)
  Receive Date: 20150623
  Receipt Date: 20150623
  Transmission Date: 20150821
  Serious: Yes (Hospitalization)
  Sender: FDA-Public Use
  Company Number: US-BAYER-2015-307079

PATIENT
  Age: 63 Year
  Sex: Male

DRUGS (1)
  1. NEXAVAR [Suspect]
     Active Substance: SORAFENIB
     Indication: HEPATIC CANCER
     Dosage: 200 MG, BID
     Route: 048
     Dates: start: 201505

REACTIONS (9)
  - Nausea [None]
  - Weight decreased [None]
  - Decreased appetite [None]
  - Vomiting [None]
  - Renal disorder [None]
  - Malaise [None]
  - Oropharyngeal pain [None]
  - Blood test abnormal [None]
  - Immunodeficiency [None]

NARRATIVE: CASE EVENT DATE: 201505
